FAERS Safety Report 4551696-5 (Version None)
Quarter: 2005Q1

REPORT INFORMATION
  Report Type: 
  Country: None (occurrence: None)
  Receive Date: 20050111
  Receipt Date: 20041227
  Transmission Date: 20050727
  Serious: Yes (Life-Threatening)
  Sender: FDA-Public Use
  Company Number: 2004-0007885

PATIENT
  Age: 39 Year
  Sex: Male
  Weight: 53.5244 kg

DRUGS (8)
  1. VIREAD [Suspect]
     Indication: ACQUIRED IMMUNODEFICIENCY SYNDROME
     Dosage: 300 MG ORAL
     Route: 048
     Dates: start: 20020301, end: 20040101
  2. LAMIVUDINE [Concomitant]
  3. KALETRA [Concomitant]
  4. IMODIUM [Concomitant]
  5. BACTRIM [Concomitant]
  6. DIFLUCAN [Concomitant]
  7. REGLAN [Concomitant]
  8. KENALOG [Concomitant]

REACTIONS (6)
  - AZOTAEMIA [None]
  - BLOOD CALCIUM DECREASED [None]
  - BLOOD MAGNESIUM DECREASED [None]
  - HYPOKALAEMIA [None]
  - HYPOPHOSPHATAEMIA [None]
  - RENAL TUBULAR ACIDOSIS [None]
